FAERS Safety Report 14747404 (Version 1)
Quarter: 2018Q2

REPORT INFORMATION
  Report Type: Spontaneous
  Country: US (occurrence: US)
  Receive Date: 20180411
  Receipt Date: 20180411
  Transmission Date: 20180711
  Serious: Yes (Other)
  Sender: FDA-Public Use
  Company Number: US-SEPTODONT-201804517

PATIENT
  Age: 35 Year
  Sex: Female
  Weight: 61.2 kg

DRUGS (3)
  1. SEPTOCAINE [Suspect]
     Active Substance: ARTICAINE HYDROCHLORIDE\EPINEPHRINE BITARTRATE
     Indication: DENTAL LOCAL ANAESTHESIA
     Dosage: 1 CARTRIDGE OF BATCH #1 OR #2 ADMINISTERED USING MONOJECT 30GA SHORT NEEDLE
     Route: 004
     Dates: start: 20180221, end: 20180221
  2. SEPTOCAINE [Suspect]
     Active Substance: ARTICAINE HYDROCHLORIDE\EPINEPHRINE BITARTRATE
     Indication: DENTAL LOCAL ANAESTHESIA
     Dosage: 1 CARTRIDGE OF BATCH #1 OR #2 ADMINISTERED USING MONOJECT 30GA SHORT NEEDLE
     Route: 004
     Dates: start: 20180221, end: 20180221
  3. ULTRACARE ORAL ANAESTHETIC GEL 20% BENZOCAINE [Concomitant]
     Indication: LOCAL ANAESTHESIA

REACTIONS (3)
  - Visual impairment [Recovered/Resolved]
  - Paraesthesia [Recovered/Resolved]
  - Pallor [Recovered/Resolved]

NARRATIVE: CASE EVENT DATE: 20180221
